FAERS Safety Report 4736718-0 (Version None)
Quarter: 2005Q3

REPORT INFORMATION
  Report Type: 
  Country: None (occurrence: None)
  Receive Date: 20050808
  Receipt Date: 20050725
  Transmission Date: 20060218
  Serious: Yes (Other)
  Sender: FDA-Public Use
  Company Number: 200516053US

PATIENT
  Sex: Male

DRUGS (4)
  1. CARAC [Suspect]
     Indication: ACTINIC KERATOSIS
     Dosage: DOSE: UNK
     Route: 061
     Dates: start: 20050309, end: 20050413
  2. ZOCOR [Concomitant]
     Dosage: DOSE: UNK
  3. FLOMAX [Concomitant]
     Dosage: DOSE: UNK
  4. IMMUNOGLOBULINS [Concomitant]
     Dosage: DOSE: UNK

REACTIONS (3)
  - ACTINIC KERATOSIS [None]
  - PAIN [None]
  - RASH ERYTHEMATOUS [None]
